FAERS Safety Report 13144306 (Version 4)
Quarter: 2017Q1

REPORT INFORMATION
  Report Type: Spontaneous
  Country: IE (occurrence: IE)
  Receive Date: 20170124
  Receipt Date: 20170215
  Transmission Date: 20170428
  Serious: Yes (Hospitalization)
  Sender: FDA-Public Use
  Company Number: IE-BAYER-2016-241389

PATIENT
  Age: 28 Year
  Sex: Female
  Weight: 62.6 kg

DRUGS (1)
  1. JAYDESS [Suspect]
     Active Substance: LEVONORGESTREL
     Indication: CONTRACEPTION
     Dosage: 14 MCG/24HR, CONT
     Route: 015
     Dates: start: 201605

REACTIONS (3)
  - Ruptured ectopic pregnancy [None]
  - Ectopic pregnancy with contraceptive device [Recovered/Resolved with Sequelae]
  - Drug ineffective [None]

NARRATIVE: CASE EVENT DATE: 20161212
